FAERS Safety Report 5795538-9 (Version None)
Quarter: 2008Q2

REPORT INFORMATION
  Report Type: 
  Country: None (occurrence: None)
  Receive Date: 20080630
  Receipt Date: 20080618
  Transmission Date: 20081010
  Serious: Yes (Other)
  Sender: FDA-Public Use
  Company Number: AR-PFIZER INC-2008043689

PATIENT
  Sex: Female
  Weight: 63 kg

DRUGS (3)
  1. AZULFIDINE EN-TABS [Suspect]
     Route: 048
  2. ATENOLOL [Concomitant]
     Route: 048
  3. ENALAPRIL MALEATE [Concomitant]
     Route: 048

REACTIONS (1)
  - HYPERTENSION [None]
